FAERS Safety Report 14233049 (Version 1)
Quarter: 2017Q4

REPORT INFORMATION
  Report Type: Spontaneous
  Country: AU (occurrence: AU)
  Receive Date: 20171129
  Receipt Date: 20171129
  Transmission Date: 20180321
  Serious: Yes (Other)
  Sender: FDA-Public Use
  Company Number: AU-APOTEX-2017AP021783

PATIENT

DRUGS (1)
  1. GABAPENTIN. [Suspect]
     Active Substance: GABAPENTIN
     Indication: ARTHRITIS
     Dosage: 1 DF, QD
     Route: 065

REACTIONS (6)
  - Ataxia [Unknown]
  - Muscular weakness [Unknown]
  - Sedation [Unknown]
  - Gait inability [Unknown]
  - Dysstasia [Unknown]
  - Off label use [Unknown]
